FAERS Safety Report 4741820-3 (Version None)
Quarter: 2005Q3

REPORT INFORMATION
  Report Type: 
  Country: None (occurrence: None)
  Receive Date: 20050810
  Receipt Date: 20050705
  Transmission Date: 20060218
  Serious: Yes (Hospitalization, Other)
  Sender: FDA-Public Use
  Company Number: US-MERCK-0507USA00569

PATIENT
  Age: 78 Year
  Sex: Female
  Weight: 59 kg

DRUGS (5)
  1. VIOXX [Suspect]
     Indication: ARTHRITIS
     Route: 048
     Dates: start: 19990101, end: 20030801
  2. VIOXX [Suspect]
     Route: 048
  3. TYLENOL (CAPLET) [Concomitant]
     Route: 065
  4. NORVASC [Concomitant]
     Route: 065
  5. PREMARIN [Concomitant]
     Route: 065

REACTIONS (6)
  - CHEST PAIN [None]
  - FALL [None]
  - HEART RATE DECREASED [None]
  - HERPES ZOSTER [None]
  - MYOCARDIAL INFARCTION [None]
  - ULCER [None]
